FAERS Safety Report 10268181 (Version 1)
Quarter: 2014Q2

REPORT INFORMATION
  Report Type: Spontaneous
  Country: US (occurrence: None)
  Receive Date: 20140626
  Receipt Date: 20140626
  Transmission Date: 20141212
  Serious: Yes (Hospitalization)
  Sender: FDA-Public Use
  Company Number: None

PATIENT
  Age: 66 Year
  Sex: Male
  Weight: 96.6 kg

DRUGS (3)
  1. WARFARIN [Suspect]
     Indication: PULMONARY EMBOLISM
     Dates: start: 20121212
  2. WARFARIN [Suspect]
     Indication: HYPERCOAGULATION
     Dates: start: 20121212
  3. CLOPIDOGREL [Suspect]
     Indication: CORONARY ARTERY DISEASE
     Route: 048
     Dates: start: 20130401, end: 20140512

REACTIONS (7)
  - Asthenia [None]
  - Dizziness [None]
  - Decreased appetite [None]
  - Haematuria [None]
  - International normalised ratio increased [None]
  - Haemorrhage [None]
  - Anaemia [None]
